FAERS Safety Report 16198637 (Version 2)
Quarter: 2019Q2

REPORT INFORMATION
  Report Type: Report from Study
  Country: US (occurrence: US)
  Receive Date: 20190415
  Receipt Date: 20190520
  Transmission Date: 20190711
  Serious: Yes (Other)
  Sender: FDA-Public Use
  Company Number: US-JNJFOC-20190134475

PATIENT
  Age: 65 Year
  Sex: Male

DRUGS (3)
  1. IMBRUVICA [Suspect]
     Active Substance: IBRUTINIB
     Indication: LYMPHOCYTIC LEUKAEMIA
     Route: 048
     Dates: start: 20190104
  2. IMBRUVICA [Suspect]
     Active Substance: IBRUTINIB
     Indication: LYMPHOCYTIC LEUKAEMIA
     Route: 048
     Dates: start: 20190303
  3. IMBRUVICA [Suspect]
     Active Substance: IBRUTINIB
     Indication: LYMPHOCYTIC LEUKAEMIA
     Route: 048
     Dates: start: 20190107

REACTIONS (9)
  - Incorrect dose administered [Unknown]
  - White blood cell count abnormal [Unknown]
  - Rash pruritic [Unknown]
  - Muscle spasms [Unknown]
  - Arthritis [Not Recovered/Not Resolved]
  - Off label use [Unknown]
  - White blood cell count decreased [Unknown]
  - Wound [Unknown]
  - Epistaxis [Unknown]

NARRATIVE: CASE EVENT DATE: 20190104
